FAERS Safety Report 6811451-X (Version None)
Quarter: 2010Q2

REPORT INFORMATION
  Report Type: 
  Country: None (occurrence: None)
  Receive Date: 20100629
  Receipt Date: 20100629
  Transmission Date: 20101027
  Serious: Yes (Other)
  Sender: FDA-Public Use
  Company Number: None

PATIENT
  Age: 38 Year
  Sex: Female
  Weight: 120.2032 kg

DRUGS (1)
  1. TUBERCULIN NOS [Suspect]
     Indication: TUBERCULIN TEST
     Dosage: 5 TU ONCE SQ
     Route: 058
     Dates: start: 20100622, end: 20100622

REACTIONS (4)
  - ERYTHEMA [None]
  - INDURATION [None]
  - INJECTION SITE RASH [None]
  - INJECTION SITE VESICLES [None]
